FAERS Safety Report 9311744 (Version 1)
Quarter: 2013Q2

REPORT INFORMATION
  Report Type: Spontaneous
  Country: US (occurrence: US)
  Receive Date: 20130528
  Receipt Date: 20130528
  Transmission Date: 20140414
  Serious: No
  Sender: FDA-Public Use
  Company Number: US-PFIZER INC-2013160335

PATIENT
  Age: 61 Year
  Sex: Female
  Weight: 81.63 kg

DRUGS (5)
  1. ADVIL PM [Suspect]
     Indication: SLEEP DISORDER
     Dosage: 200 MG, DAILY
     Route: 048
     Dates: start: 2012
  2. ADVIL PM [Suspect]
     Indication: PAIN
  3. CRESTOR [Concomitant]
     Indication: BLOOD CHOLESTEROL ABNORMAL
     Dosage: 10 MG, DAILY
  4. CLOBETASOL PROPIONATE [Concomitant]
     Indication: PSORIASIS
     Dosage: UNK, AS NEEDED (FOR TWO WEEKS IN EVERY MONTH)
     Route: 061
     Dates: start: 2008
  5. VECTICAL [Concomitant]
     Indication: PSORIASIS
     Dosage: UNK, AS NEEDED (FOR TWO WEEKS IN EVERY MONTH)
     Route: 061
     Dates: start: 2008

REACTIONS (2)
  - Laceration [Unknown]
  - Product packaging issue [Unknown]
